FAERS Safety Report 13980093 (Version 2)
Quarter: 2017Q4

REPORT INFORMATION
  Report Type: Report from Study
  Country: US (occurrence: US)
  Receive Date: 20170914
  Receipt Date: 20171129
  Transmission Date: 20180321
  Serious: Yes (Death)
  Sender: FDA-Public Use
  Company Number: US-ASTELLAS-2016US046510

PATIENT
  Age: 75 Year
  Sex: Male

DRUGS (1)
  1. ENZALUTAMIDE [Suspect]
     Active Substance: ENZALUTAMIDE
     Indication: HORMONE-REFRACTORY PROSTATE CANCER
     Route: 048
     Dates: start: 20161107

REACTIONS (4)
  - Tinnitus [Recovered/Resolved]
  - Drug ineffective [Not Recovered/Not Resolved]
  - Death [Fatal]
  - Vein rupture [Not Recovered/Not Resolved]

NARRATIVE: CASE EVENT DATE: 20161114
